FAERS Safety Report 6770071-6 (Version None)
Quarter: 2010Q2

REPORT INFORMATION
  Report Type: 
  Country: None (occurrence: None)
  Receive Date: 20100615
  Receipt Date: 20100603
  Transmission Date: 20101027
  Serious: Yes (Hospitalization, Other)
  Sender: FDA-Public Use
  Company Number: US-BAYER-201024693NA

PATIENT
  Age: 25 Year
  Sex: Female

DRUGS (2)
  1. YASMIN [Suspect]
     Indication: DRUG USE FOR UNKNOWN INDICATION
     Route: 048
     Dates: start: 20061201, end: 20070601
  2. YAZ [Suspect]
     Indication: DRUG USE FOR UNKNOWN INDICATION
     Route: 048
     Dates: start: 20070601, end: 20070701

REACTIONS (5)
  - CHOLELITHIASIS [None]
  - GALLBLADDER PAIN [None]
  - GASTROINTESTINAL DISORDER [None]
  - PANCREATITIS [None]
  - PULMONARY EMBOLISM [None]
